FAERS Safety Report 8015289-X (Version None)
Quarter: 2011Q4

REPORT INFORMATION
  Report Type: 
  Country: None (occurrence: None)
  Receive Date: 20111223
  Receipt Date: 20111212
  Transmission Date: 20120403
  Serious: Yes (Other)
  Sender: FDA-Public Use
  Company Number: 1000025746

PATIENT
  Age: 48 Year
  Sex: Male
  Weight: 139 kg

DRUGS (7)
  1. ATENOLOL (ATENOLOL) (25 MILLIGRAM) (ATENOLOL) [Concomitant]
  2. SPIRIVA (TIOTROPIUM BROMIDE) (18 MICROGRAM) (TIOTROPIUM BROMIDE) [Concomitant]
  3. VOTUM PLUS (BENICAR HCT) (BENICAR HCT) [Concomitant]
  4. ROFLUMILAST (ROFLUMILAST) (TABLETS) [Suspect]
     Indication: CHRONIC OBSTRUCTIVE PULMONARY DISEASE
     Dosage: 500 MCG (500 MCG, 1 IN 1 D), ORAL
     Route: 048
     Dates: start: 20110210, end: 20110101
  5. BERODUAL (DUOVENT) (DUOVENT) [Concomitant]
  6. FORMATRIS (FORMOTEROL FUMARATE) (FORMOTEROL FUMARATE) [Concomitant]
  7. BUDIAIR (BUDESONIDE) (BUDESONIDE) [Concomitant]

REACTIONS (2)
  - DIARRHOEA [None]
  - GASTROINTESTINAL DISORDER [None]
